FAERS Safety Report 5914657-7 (Version None)
Quarter: 2008Q4

REPORT INFORMATION
  Report Type: 
  Country: None (occurrence: None)
  Receive Date: 20081010
  Receipt Date: 20081006
  Transmission Date: 20090506
  Serious: Yes (Hospitalization, Other)
  Sender: FDA-Public Use
  Company Number: DE-BAYER-200827697GPV

PATIENT
  Age: 11 Year
  Sex: Female
  Weight: 50 kg

DRUGS (1)
  1. CIPROFLOXACIN [Suspect]
     Indication: URINARY TRACT INFECTION
     Route: 048
     Dates: start: 20080828, end: 20080828

REACTIONS (4)
  - ANAPHYLACTIC REACTION [None]
  - DIARRHOEA [None]
  - GASTROINTESTINAL PAIN [None]
  - URTICARIA [None]
